FAERS Safety Report 9395968 (Version 2)
Quarter: 2013Q3

REPORT INFORMATION
  Report Type: Spontaneous
  Country: US (occurrence: US)
  Receive Date: 20130711
  Receipt Date: 20130731
  Transmission Date: 20140515
  Serious: No
  Sender: FDA-Public Use
  Company Number: US-PFIZER INC-2013202914

PATIENT
  Age: 48 Year
  Sex: Female
  Weight: 86.17 kg

DRUGS (4)
  1. LYRICA [Suspect]
     Indication: FIBROMYALGIA
     Dosage: UNK
     Route: 048
     Dates: start: 2001
  2. LYRICA [Suspect]
     Dosage: UNK
     Route: 048
     Dates: end: 201307
  3. ADVAIR [Concomitant]
     Indication: ASTHMA
     Dosage: UNK
  4. ALBUTEROL [Concomitant]
     Indication: ASTHMA
     Dosage: UNK

REACTIONS (4)
  - Nasopharyngitis [Unknown]
  - Speech disorder [Unknown]
  - Nasal congestion [Unknown]
  - Pain [Unknown]
